FAERS Safety Report 18505329 (Version 2)
Quarter: 2020Q4

REPORT INFORMATION
  Report Type: Spontaneous
  Country: DE (occurrence: DE)
  Receive Date: 20201116
  Receipt Date: 20201126
  Transmission Date: 20210114
  Serious: Yes (Hospitalization)
  Sender: FDA-Public Use
  Company Number: DE-ROCHE-2714541

PATIENT
  Sex: Female

DRUGS (8)
  1. HERCEPTIN [Suspect]
     Active Substance: TRASTUZUMAB
     Indication: BREAST CANCER
     Route: 065
     Dates: start: 202010
  2. PERTUZUMAB. [Suspect]
     Active Substance: PERTUZUMAB
     Indication: ADJUVANT THERAPY
     Route: 065
     Dates: start: 2020
  3. HERCEPTIN [Suspect]
     Active Substance: TRASTUZUMAB
     Indication: ADJUVANT THERAPY
     Route: 065
     Dates: start: 2020
  4. PACLITAXEL. [Concomitant]
     Active Substance: PACLITAXEL
     Indication: BREAST CANCER
     Dosage: 12 CYCLE
     Dates: start: 2020
  5. PERTUZUMAB. [Suspect]
     Active Substance: PERTUZUMAB
     Indication: BREAST CANCER
  6. METHOTREXATE. [Concomitant]
     Active Substance: METHOTREXATE
     Indication: RHEUMATOID ARTHRITIS
  7. CYCLOPHOSPHAMIDE. [Concomitant]
     Active Substance: CYCLOPHOSPHAMIDE
     Dosage: 4 CYCLES, WITH EPIRUBICIN
     Dates: start: 2020
  8. EPIRUBICIN [Concomitant]
     Active Substance: EPIRUBICIN
     Dosage: 4 CYCLES, WITH CYCLOPHOSPHAMID
     Dates: start: 2020

REACTIONS (3)
  - Papilloedema [Unknown]
  - Visual impairment [Unknown]
  - Eye disorder [Unknown]
